FAERS Safety Report 7571904-6 (Version None)
Quarter: 2011Q2

REPORT INFORMATION
  Report Type: 
  Country: None (occurrence: None)
  Receive Date: 20110624
  Receipt Date: 20100908
  Transmission Date: 20111010
  Serious: No
  Sender: FDA-Public Use
  Company Number: A0880288A

PATIENT
  Age: 68 Year
  Sex: Female

DRUGS (11)
  1. UNKNOWN MEDICATION [Concomitant]
  2. LOVAZA [Concomitant]
  3. COUMADIN [Concomitant]
  4. FUROSEMIDE [Concomitant]
  5. SINGULAIR [Concomitant]
  6. VERAMYST [Suspect]
     Indication: COUGH
     Dosage: 1SPR TWICE PER DAY
     Route: 045
     Dates: start: 20100602, end: 20100903
  7. ESTRADIOL [Concomitant]
  8. SIMVASTATIN [Concomitant]
  9. SYNTHROID [Concomitant]
  10. NEFAZODONE [Concomitant]
  11. UNSPECIFIED MEDICATION [Concomitant]

REACTIONS (1)
  - EPISTAXIS [None]
